FAERS Safety Report 9405139 (Version 1)
Quarter: 2013Q3

REPORT INFORMATION
  Report Type: Spontaneous
  Country: US (occurrence: US)
  Receive Date: 20130717
  Receipt Date: 20130717
  Transmission Date: 20140515
  Serious: No
  Sender: FDA-Public Use
  Company Number: US-009507513-1306USA012784

PATIENT
  Age: 61 Year
  Sex: Female

DRUGS (4)
  1. VICTRELIS [Suspect]
     Indication: HEPATITIS C
     Dosage: 800 MG, TID
     Route: 048
     Dates: start: 20130424
  2. PEGASYS [Suspect]
  3. RIBASPHERE [Suspect]
  4. LEXAPRO [Concomitant]

REACTIONS (4)
  - Tooth extraction [Unknown]
  - Hypersomnia [Unknown]
  - Diarrhoea [Unknown]
  - Nausea [Unknown]
